FAERS Safety Report 6477468-2 (Version None)
Quarter: 2009Q4

REPORT INFORMATION
  Report Type: 
  Country: None (occurrence: None)
  Receive Date: 20091207
  Receipt Date: 20091118
  Transmission Date: 20100525
  Serious: Yes (Hospitalization, Other)
  Sender: FDA-Public Use
  Company Number: PL-SANOFI-AVENTIS-2009SA003075

PATIENT
  Sex: Male

DRUGS (6)
  1. ZOLPIDEM TARTRATE [Suspect]
     Indication: INSOMNIA
     Dosage: USED HYPNOTICS EVERY DAY FOR THE LAST 4 YEARS, ALSO DURING THE DAY.
     Route: 048
  2. ZOLPIDEM TARTRATE [Suspect]
     Dosage: USED HYPNOTICS EVERY DAY FOR THE LAST 4 YEARS, ALSO DURING THE DAY.
     Route: 048
  3. ZOLPIDEM TARTRATE [Suspect]
     Dosage: USED HYPNOTICS EVERY DAY FOR THE LAST 4 YEARS, ALSO DURING THE DAY.
     Route: 048
  4. ZOPICLONE [Suspect]
     Indication: INSOMNIA
     Dosage: USED HYPNOTICS EVERY DAY FOR THE LAST 4 YEARS, ALSO DURING THE DAY.
     Route: 048
  5. ZOPICLONE [Suspect]
     Dosage: USED HYPNOTICS EVERY DAY FOR THE LAST 4 YEARS, ALSO DURING THE DAY.
     Route: 048
  6. VALPROATE SODIUM [Concomitant]
     Indication: EPILEPSY
     Dosage: ^STARTED RECENTLY^
     Route: 065

REACTIONS (5)
  - DEPRESSION [None]
  - DRUG ABUSE [None]
  - DRUG DEPENDENCE [None]
  - MULTIPLE DRUG OVERDOSE INTENTIONAL [None]
  - PHOBIA [None]
